FAERS Safety Report 11758113 (Version 1)
Quarter: 2015Q4

REPORT INFORMATION
  Report Type: Spontaneous
  Country: IL (occurrence: None)
  Receive Date: 20151119
  Receipt Date: 20151119
  Transmission Date: 20160304
  Serious: Yes (Death)
  Sender: FDA-Public Use
  Company Number: None

PATIENT
  Age: 70 Year
  Sex: Female
  Weight: 82 kg

DRUGS (2)
  1. SOVALDI [Suspect]
     Active Substance: SOFOSBUVIR
     Indication: CHRONIC HEPATITIS C
     Dosage: 1 PILL ?1 ?QD
     Dates: start: 20151109, end: 20151115
  2. DAKLINZA [Suspect]
     Active Substance: DACLATASVIR
     Indication: CHRONIC HEPATITIS C
     Dosage: 1 PILL?1 ?QD
     Dates: start: 20151109, end: 20151115

REACTIONS (7)
  - Blood pressure decreased [None]
  - Abdominal pain upper [None]
  - Hepatic cirrhosis [None]
  - Condition aggravated [None]
  - Colitis [None]
  - Ascites [None]
  - Cognitive disorder [None]

NARRATIVE: CASE EVENT DATE: 20151115
